FAERS Safety Report 5045459-4 (Version None)
Quarter: 2006Q3

REPORT INFORMATION
  Report Type: 
  Country: None (occurrence: None)
  Receive Date: 20060707
  Receipt Date: 20060627
  Transmission Date: 20061208
  Serious: Yes (Other)
  Sender: FDA-Public Use
  Company Number: PHEH2006US08352

PATIENT
  Age: 70 Year
  Sex: Male

DRUGS (10)
  1. ZOMETA [Suspect]
     Indication: PROSTATE CANCER METASTATIC
     Dosage: 4MG Q3WKS
     Route: 042
     Dates: start: 20060425
  2. LUPRON [Concomitant]
  3. ATENOLOL [Concomitant]
  4. CRESTOR [Concomitant]
  5. LORTAB [Concomitant]
  6. AMITRIPTYLINE HCL [Concomitant]
  7. CASODEX [Concomitant]
  8. PAPAVERIN [Concomitant]
  9. NORVASC [Concomitant]
  10. ATIVAN [Concomitant]

REACTIONS (2)
  - DEAFNESS [None]
  - POOR PERIPHERAL CIRCULATION [None]
